FAERS Safety Report 9664180 (Version 2)
Quarter: 2013Q4

REPORT INFORMATION
  Report Type: Spontaneous
  Country: US (occurrence: US)
  Receive Date: 20131101
  Receipt Date: 20131122
  Transmission Date: 20140711
  Serious: Yes (Hospitalization, Other)
  Sender: FDA-Public Use
  Company Number: US-JNJFOC-20131017021

PATIENT
  Age: 70 Year
  Sex: Male
  Weight: 98.8 kg

DRUGS (28)
  1. XARELTO [Suspect]
     Indication: CEREBROVASCULAR ACCIDENT PROPHYLAXIS
     Route: 048
     Dates: end: 20131027
  2. XARELTO [Suspect]
     Indication: ATRIAL FIBRILLATION
     Route: 048
     Dates: end: 20131027
  3. HEPARIN [Suspect]
     Indication: PRODUCT USED FOR UNKNOWN INDICATION
     Route: 042
  4. MORPHINE SULFATE [Concomitant]
     Indication: PAIN
     Route: 042
  5. TOPROL [Concomitant]
     Route: 048
  6. SPIRIVA [Concomitant]
     Route: 055
  7. FLOMAX [Concomitant]
     Dosage: GIVE 30 MIN AFTER SAME MEAL DAILY SWALLOW WHOLE DONT CRUSH,CHEW OR OPEN CAPSULE
     Route: 048
  8. SOLATOL [Concomitant]
     Route: 048
  9. ZESTORETIC [Concomitant]
     Route: 065
  10. ISORDIL [Concomitant]
     Route: 065
  11. GLUCOTROL [Concomitant]
     Route: 048
  12. GLUCOPHAGE [Concomitant]
     Dosage: HOLD 48 HOURS AFTER CONTRAST MEDIA
     Route: 048
  13. PRAVACHOL [Concomitant]
     Route: 048
  14. PLAVIX [Concomitant]
     Route: 048
  15. VITAMIN D [Concomitant]
     Route: 048
  16. ASPIRIN [Concomitant]
     Route: 048
  17. MAGNESIUM [Concomitant]
     Route: 048
  18. ZANTAC [Concomitant]
     Route: 048
  19. COLACE [Concomitant]
     Route: 048
  20. IMDUR [Concomitant]
     Route: 048
  21. VENTOLINE INHALER [Concomitant]
     Route: 055
  22. TYLENOL [Concomitant]
     Indication: PAIN
     Route: 065
  23. TYLENOL [Concomitant]
     Indication: PAIN
     Route: 065
  24. ZOFRAN [Concomitant]
     Indication: NAUSEA
     Route: 042
  25. ASA [Concomitant]
     Route: 065
  26. VITAMIN D3 [Concomitant]
     Route: 065
  27. GLIPIZIDE [Concomitant]
     Route: 065
  28. LISINOPRIL [Concomitant]
     Route: 065

REACTIONS (11)
  - Acute myocardial infarction [Unknown]
  - Troponin increased [Not Recovered/Not Resolved]
  - Red blood cell count decreased [Recovered/Resolved]
  - Prothrombin time prolonged [Recovered/Resolved]
  - Gingival bleeding [Recovered/Resolved]
  - Dyspnoea [Unknown]
  - Dysgeusia [Not Recovered/Not Resolved]
  - Heart rate increased [Unknown]
  - Chest pain [Unknown]
  - Palpitations [Unknown]
  - Pain in jaw [Unknown]
